FAERS Safety Report 18322678 (Version 1)
Quarter: 2020Q3

REPORT INFORMATION
  Report Type: Report from Study
  Country: FR (occurrence: FR)
  Receive Date: 20200928
  Receipt Date: 20200928
  Transmission Date: 20201103
  Serious: Yes (Other)
  Sender: FDA-Public Use
  Company Number: FR-INCYTE CORPORATION-2020IN009128

PATIENT

DRUGS (3)
  1. SECTRAL [Concomitant]
     Active Substance: ACEBUTOLOL HYDROCHLORIDE
     Indication: HYPERTENSION
     Dosage: UNK
     Route: 048
  2. RENITEC [ENALAPRILAT] [Concomitant]
     Active Substance: ENALAPRILAT
     Indication: HYPERTENSION
     Dosage: UNK
     Route: 048
  3. JAKAVI [Suspect]
     Active Substance: RUXOLITINIB
     Indication: PRIMARY MYELOFIBROSIS
     Dosage: 40 MG, QD
     Route: 048
     Dates: start: 20200814, end: 20200902

REACTIONS (5)
  - Thrombocytopenia [Not Recovered/Not Resolved]
  - Malaise [Recovering/Resolving]
  - Anaemia [Not Recovered/Not Resolved]
  - Concomitant disease aggravated [Not Recovered/Not Resolved]
  - Pallor [Unknown]

NARRATIVE: CASE EVENT DATE: 20200901
